FAERS Safety Report 11003009 (Version 1)
Quarter: 2015Q2

REPORT INFORMATION
  Report Type: Report from Study
  Country: CN (occurrence: CN)
  Receive Date: 20150408
  Receipt Date: 20150408
  Transmission Date: 20150821
  Serious: Yes (Other)
  Sender: FDA-Public Use
  Company Number: CN-MYLANLABS-2015M1011480

PATIENT

DRUGS (7)
  1. METHOTREXATE [Suspect]
     Active Substance: METHOTREXATE
     Indication: GESTATIONAL TROPHOBLASTIC TUMOUR
     Dosage: 100 MG/M2 ON DAY 3, EVERY 3WKS
     Route: 041
  2. FOLINIC ACID [Concomitant]
     Active Substance: LEUCOVORIN
     Dosage: STARTING 12 HRS AFTER METHOTREXATE INFUSION
     Route: 048
  3. METHOTREXATE [Suspect]
     Active Substance: METHOTREXATE
     Dosage: 200 MG/M2 ON DAY 3
     Route: 041
  4. VINCRISTINE [Suspect]
     Active Substance: VINCRISTINE
     Indication: GESTATIONAL TROPHOBLASTIC TUMOUR
     Dosage: 1 MG/M2 (MAXIMUM OF 2MG) ON DAY 3, EVERY 3WKS
     Route: 041
  5. HYDROXYCARBAMIDE [Suspect]
     Active Substance: HYDROXYUREA
     Indication: GESTATIONAL TROPHOBLASTIC TUMOUR
     Dosage: ON DAY 1 AND 2, EVERY 3WKS.
     Route: 048
  6. DACTINOMYCIN [Suspect]
     Active Substance: DACTINOMYCIN
     Indication: GESTATIONAL TROPHOBLASTIC TUMOUR
     Dosage: 0.01 MG/KG (MAXIMUM OF 0.5MG) ON DAY 5, 6 AND 7, EVERY 3WKS
     Route: 040
  7. CYCLOPHOSPHAMIDE. [Suspect]
     Active Substance: CYCLOPHOSPHAMIDE
     Indication: GESTATIONAL TROPHOBLASTIC TUMOUR
     Dosage: 600 MG/M2 ON DAY 5, EVERY 3WKS
     Route: 041

REACTIONS (2)
  - Stomatitis [Unknown]
  - Systemic lupus erythematosus [Unknown]
